FAERS Safety Report 17067008 (Version 1)
Quarter: 2019Q4

REPORT INFORMATION
  Report Type: Report from Study
  Country: US (occurrence: JP)
  Receive Date: 20191122
  Receipt Date: 20191122
  Transmission Date: 20200122
  Serious: Yes (Hospitalization, Other)
  Sender: FDA-Public Use
  Company Number: NVSC2019JP042868

PATIENT
  Age: 59 Year
  Sex: Female
  Weight: 56 kg

DRUGS (6)
  1. MIYA-BM [Concomitant]
     Active Substance: CLOSTRIDIUM BUTYRICUM SPORES STRAIN M-55
     Indication: PROPHYLAXIS
     Dosage: UNK
     Route: 065
     Dates: start: 20180810
  2. ABEMACICLIB [Suspect]
     Active Substance: ABEMACICLIB
     Indication: INVASIVE LOBULAR BREAST CARCINOMA
     Dosage: 150 MG
     Route: 048
     Dates: start: 20180810, end: 20191004
  3. NORVASC [Concomitant]
     Active Substance: AMLODIPINE BESYLATE
     Indication: HYPERTENSION
     Dosage: UNK
     Route: 065
     Dates: start: 20180501
  4. ANASTROZOLE. [Suspect]
     Active Substance: ANASTROZOLE
     Indication: INVASIVE LOBULAR BREAST CARCINOMA
     Dosage: UNK
     Route: 048
     Dates: start: 20180727, end: 20180809
  5. LETROZOLE. [Suspect]
     Active Substance: LETROZOLE
     Indication: INVASIVE LOBULAR BREAST CARCINOMA
     Dosage: 2.5 MG
     Route: 048
     Dates: start: 20190208, end: 20191004
  6. ANASTROZOLE. [Suspect]
     Active Substance: ANASTROZOLE
     Dosage: 1 MG, QD
     Route: 048
     Dates: start: 20180810, end: 20190110

REACTIONS (9)
  - Cerebral artery stenosis [Unknown]
  - Arthralgia [Unknown]
  - Metastases to lung [Unknown]
  - Hemiparesis [Recovering/Resolving]
  - Metastases to bone [Unknown]
  - Blood pressure increased [Unknown]
  - Cerebral infarction [Recovering/Resolving]
  - Dyslalia [Recovering/Resolving]
  - Invasive lobular breast carcinoma [Unknown]

NARRATIVE: CASE EVENT DATE: 20191012
